FAERS Safety Report 6860926-6 (Version None)
Quarter: 2010Q3

REPORT INFORMATION
  Report Type: 
  Country: None (occurrence: None)
  Receive Date: 20100715
  Receipt Date: 20100706
  Transmission Date: 20110219
  Serious: Yes (Life-Threatening, Hospitalization, Other)
  Sender: FDA-Public Use
  Company Number: 237774K07USA

PATIENT
  Age: 55 Year
  Sex: Female
  Weight: 54 kg

DRUGS (11)
  1. REBIF [Suspect]
     Indication: MULTIPLE SCLEROSIS
     Dosage: 44 MCG, 3 IN 1 WK, SUBCUTANEOUS
     Route: 058
     Dates: start: 20060929, end: 20070101
  2. REBIF [Suspect]
     Indication: MULTIPLE SCLEROSIS
     Dosage: 44 MCG, 3 IN 1 WK, SUBCUTANEOUS
     Route: 058
     Dates: start: 20070101
  3. NEURONTIN [Concomitant]
  4. LEXAPRO [Concomitant]
  5. PEPCID [Concomitant]
  6. REMERON [Concomitant]
  7. TAMOXIFEN CITRATE [Concomitant]
  8. LIPITOR [Concomitant]
  9. LISINOPRIL [Concomitant]
  10. CHOLESTYRAMINE (COLESTYRAMINE) [Concomitant]
  11. LYRICA (PREGAEALIN) [Concomitant]

REACTIONS (9)
  - ANGINA UNSTABLE [None]
  - CATHETERISATION CARDIAC ABNORMAL [None]
  - CORONARY ARTERY DISEASE [None]
  - CORONARY ARTERY STENOSIS [None]
  - INFECTION [None]
  - MYOCARDIAL INFARCTION [None]
  - PARAESTHESIA [None]
  - PNEUMONIA [None]
  - SCAB [None]
